FAERS Safety Report 11912362 (Version 3)
Quarter: 2016Q1

REPORT INFORMATION
  Report Type: Spontaneous
  Country: US (occurrence: US)
  Receive Date: 20160113
  Receipt Date: 20160315
  Transmission Date: 20160526
  Serious: Yes (Death, Hospitalization)
  Sender: FDA-Public Use
  Company Number: US-ROCHE-1692932

PATIENT
  Age: 55 Year
  Sex: Female

DRUGS (2)
  1. ESBRIET [Suspect]
     Active Substance: PIRFENIDONE
     Indication: IDIOPATHIC PULMONARY FIBROSIS
     Route: 048
     Dates: start: 20150516
  2. ESBRIET [Suspect]
     Active Substance: PIRFENIDONE
     Route: 048

REACTIONS (2)
  - Dyspnoea [Unknown]
  - Death [Fatal]

NARRATIVE: CASE EVENT DATE: 20160106
